FAERS Safety Report 5241192-4 (Version None)
Quarter: 2007Q1

REPORT INFORMATION
  Report Type: 
  Country: None (occurrence: None)
  Receive Date: 20070220
  Receipt Date: 20070215
  Transmission Date: 20070707
  Serious: Yes (Death)
  Sender: FDA-Public Use
  Company Number: US-BAYER-200614850BCC

PATIENT
  Age: 22 Year
  Sex: Female

DRUGS (1)
  1. MIDOL [Suspect]
     Indication: ABDOMINAL PAIN UPPER
     Dosage: UNIT DOSE: 500 MG
     Route: 048
     Dates: start: 20061201

REACTIONS (1)
  - HAEMORRHAGE [None]
